FAERS Safety Report 5429223-X (Version None)
Quarter: 2007Q3

REPORT INFORMATION
  Report Type: 
  Country: None (occurrence: None)
  Receive Date: 20070827
  Receipt Date: 20070827
  Transmission Date: 20080115
  Serious: Yes (Hospitalization)
  Sender: FDA-Public Use
  Company Number: None

PATIENT
  Age: 60 Year
  Sex: Female
  Weight: 58 kg

DRUGS (1)
  1. ZOSYN [Suspect]
     Indication: PNEUMONIA ASPIRATION
     Dosage: 3.375 GM Q6H IV
     Route: 042
     Dates: start: 20070319, end: 20070326

REACTIONS (1)
  - IDIOPATHIC THROMBOCYTOPENIC PURPURA [None]
